FAERS Safety Report 7428865-X (Version None)
Quarter: 2011Q2

REPORT INFORMATION
  Report Type: 
  Country: None (occurrence: None)
  Receive Date: 20110413
  Receipt Date: 20110331
  Transmission Date: 20111010
  Serious: Yes (Other)
  Sender: FDA-Public Use
  Company Number: 023540

PATIENT
  Sex: Male

DRUGS (1)
  1. CIMZIA [Suspect]
     Dosage: SUBCUTANEOUS
     Route: 058

REACTIONS (6)
  - URTICARIA [None]
  - PSORIASIS [None]
  - PRURITUS GENERALISED [None]
  - ARTHRITIS [None]
  - BLOOD PRESSURE INCREASED [None]
  - PANOPHTHALMITIS [None]
